FAERS Safety Report 22710890 (Version 7)
Quarter: 2023Q4

REPORT INFORMATION
  Report Type: Spontaneous
  Country: US (occurrence: US)
  Receive Date: 20230717
  Receipt Date: 20231016
  Transmission Date: 20240109
  Serious: Yes (Hospitalization, Other)
  Sender: FDA-Public Use
  Company Number: US-SA-SAC20230714001132

PATIENT
  Age: 56 Year
  Sex: Female
  Weight: 74.84 kg

DRUGS (9)
  1. DUPIXENT [Suspect]
     Active Substance: DUPILUMAB
     Indication: Asthma
     Dosage: 600 MG, 1X
     Route: 058
     Dates: start: 20230531, end: 20230531
  2. DUPIXENT [Suspect]
     Active Substance: DUPILUMAB
     Indication: Dermatitis atopic
     Dosage: 300 MG, QOW
     Route: 058
     Dates: start: 202306, end: 20230807
  3. MODERNA COVID-19 VACCINE [Suspect]
     Active Substance: ELASOMERAN
     Dosage: UNK
  4. KESIMPTA [Concomitant]
     Active Substance: OFATUMUMAB
     Dosage: UNK
  5. KESIMPTA [Concomitant]
     Active Substance: OFATUMUMAB
  6. PROGESTERONE [Concomitant]
     Active Substance: PROGESTERONE
  7. ESTRADIOL [Concomitant]
     Active Substance: ESTRADIOL
  8. NUCALA [Concomitant]
     Active Substance: MEPOLIZUMAB
  9. GABAPENTIN [Concomitant]
     Active Substance: GABAPENTIN
     Dosage: UNK

REACTIONS (6)
  - Multiple sclerosis relapse [Not Recovered/Not Resolved]
  - Pulmonary embolism [Recovered/Resolved]
  - Hypophagia [Unknown]
  - Myalgia [Recovering/Resolving]
  - Chest pain [Recovered/Resolved]
  - Decreased appetite [Recovered/Resolved]

NARRATIVE: CASE EVENT DATE: 20230101
